FAERS Safety Report 5242291-3 (Version None)
Quarter: 2007Q1

REPORT INFORMATION
  Report Type: 
  Country: None (occurrence: None)
  Receive Date: 20070221
  Receipt Date: 20070211
  Transmission Date: 20070707
  Serious: Yes (Other)
  Sender: FDA-Public Use
  Company Number: CA-JNJFOC-20070203022

PATIENT
  Sex: Female
  Weight: 90 kg

DRUGS (4)
  1. REMICADE [Suspect]
     Dosage: RECEIVED AT WEEK 6
     Route: 042
  2. REMICADE [Suspect]
     Dosage: RECEIVED AT WEEK 2 (DATE UNKNOWN)
     Route: 042
  3. REMICADE [Suspect]
     Indication: CROHN'S DISEASE
     Dosage: RECEIVED AT WEEK 0
     Route: 042
  4. IMURAN [Concomitant]
     Indication: CROHN'S DISEASE
     Route: 048

REACTIONS (2)
  - INTESTINAL RESECTION [None]
  - LUPUS-LIKE SYNDROME [None]
